FAERS Safety Report 7770275-X (Version None)
Quarter: 2011Q3

REPORT INFORMATION
  Report Type: 
  Country: None (occurrence: None)
  Receive Date: 20110922
  Receipt Date: 20100311
  Transmission Date: 20111222
  Serious: No
  Sender: FDA-Public Use
  Company Number: US-ASTRAZENECA-2009UW13188

PATIENT
  Age: 41 Year
  Sex: Female
  Weight: 93.4 kg

DRUGS (13)
  1. SEROQUEL [Suspect]
     Indication: DEPRESSION
     Route: 048
     Dates: start: 20031101
  2. SEROQUEL [Suspect]
     Route: 048
     Dates: start: 20040512
  3. IBUPROFEN [Concomitant]
     Dates: start: 20040512
  4. RISPERDAL [Concomitant]
     Dates: start: 20010801
  5. WELLBUTRIN SR [Concomitant]
     Dates: start: 20040512
  6. SEROQUEL [Suspect]
     Indication: BIPOLAR DISORDER
     Route: 048
     Dates: start: 20031101
  7. DEPAKOTE ER [Concomitant]
     Dates: start: 20040512
  8. OXYCODONE HCL AND ACETAMINOPHEN [Concomitant]
     Dosage: 5/325
     Dates: start: 20040609
  9. SEROQUEL [Suspect]
     Route: 048
     Dates: start: 20040512
  10. SEROQUEL [Suspect]
     Indication: ANXIETY
     Route: 048
     Dates: start: 20031101
  11. SEROQUEL [Suspect]
     Route: 048
     Dates: start: 20040512
  12. TRAZODONE HYDROCHLORIDE [Concomitant]
     Dates: start: 20040512
  13. METRONIDAZOLE [Concomitant]
     Dates: start: 20040405

REACTIONS (4)
  - ESSENTIAL HYPERTENSION [None]
  - TYPE 2 DIABETES MELLITUS [None]
  - GASTROOESOPHAGEAL REFLUX DISEASE [None]
  - CHRONIC OBSTRUCTIVE PULMONARY DISEASE [None]
